FAERS Safety Report 16776415 (Version 1)
Quarter: 2019Q3

REPORT INFORMATION
  Report Type: Spontaneous
  Country: BE (occurrence: BE)
  Receive Date: 20190905
  Receipt Date: 20190905
  Transmission Date: 20191005
  Serious: Yes (Hospitalization, Other)
  Sender: FDA-Public Use
  Company Number: BE-MYLANLABS-2019M1083043

PATIENT
  Age: 66 Year
  Sex: Male

DRUGS (3)
  1. PRASUGREL. [Suspect]
     Active Substance: PRASUGREL
     Indication: PRODUCT USED FOR UNKNOWN INDICATION
     Dosage: UNK
  2. ABCIXIMAB [Interacting]
     Active Substance: ABCIXIMAB
     Indication: PERCUTANEOUS CORONARY INTERVENTION
     Dosage: UNK
  3. ACETYLSALICYLIC ACID [Interacting]
     Active Substance: ASPIRIN
     Indication: BLOOD DISORDER PROPHYLAXIS
     Dosage: UNK

REACTIONS (4)
  - Obstructive shock [Unknown]
  - Labelled drug-drug interaction medication error [Unknown]
  - Dressler^s syndrome [Unknown]
  - Pericardial haemorrhage [Unknown]
